FAERS Safety Report 14778596 (Version 1)
Quarter: 2018Q2

REPORT INFORMATION
  Report Type: Spontaneous
  Country: US (occurrence: US)
  Receive Date: 20180419
  Receipt Date: 20180419
  Transmission Date: 20180711
  Serious: Yes (Hospitalization)
  Sender: FDA-Public Use
  Company Number: US-SA-2018SA110381

PATIENT
  Age: 62 Year
  Sex: Male
  Weight: 83.99 kg

DRUGS (24)
  1. CELLCEPT [Concomitant]
     Active Substance: MYCOPHENOLATE MOFETIL\MYCOPHENOLATE MOFETIL HYDROCHLORIDE
     Dosage: 250 MG/CP
     Route: 048
     Dates: start: 20180119
  2. TIKOSYN [Concomitant]
     Active Substance: DOFETILIDE
     Dosage: I CAPSULE
     Route: 048
     Dates: start: 20180214
  3. LASIX [Concomitant]
     Active Substance: FUROSEMIDE
     Route: 048
     Dates: start: 20180119
  4. LOSARTAN. [Concomitant]
     Active Substance: LOSARTAN
     Dosage: 25MD/TB
     Route: 048
     Dates: start: 20180330
  5. LEVOTHYROXINE. [Concomitant]
     Active Substance: LEVOTHYROXINE
     Dosage: 0.05 MD/TB
     Route: 048
     Dates: start: 20180108
  6. IRON [Concomitant]
     Active Substance: IRON
     Dosage: 27 MG/TB
     Route: 048
     Dates: start: 20180108
  7. ALLOPURINOL. [Concomitant]
     Active Substance: ALLOPURINOL
     Dosage: 100 MD/TB
     Route: 048
     Dates: start: 20171222
  8. PROAIR HFA [Concomitant]
     Active Substance: ALBUTEROL SULFATE
     Dosage: 2 PUFF INH
     Route: 065
     Dates: start: 20150213
  9. RANITIDINE. [Concomitant]
     Active Substance: RANITIDINE
     Dosage: 150 MD/TB
     Route: 048
     Dates: start: 20180119
  10. FABRAZYME [Suspect]
     Active Substance: AGALSIDASE BETA
     Indication: FABRY^S DISEASE
     Route: 041
  11. EPINEPHRINE. [Concomitant]
     Active Substance: EPINEPHRINE
     Route: 030
     Dates: start: 20180130
  12. METOPROLOL SUCCINATE. [Concomitant]
     Active Substance: METOPROLOL SUCCINATE
     Dosage: 100 MD/TB
     Route: 048
     Dates: start: 20180119
  13. CALCITRIOL. [Concomitant]
     Active Substance: CALCITRIOL
     Route: 048
     Dates: start: 20180108
  14. DIPHENHYDRAMINE. [Concomitant]
     Active Substance: DIPHENHYDRAMINE
     Indication: ANAPHYLACTIC REACTION
     Route: 048
     Dates: start: 20180130
  15. WARFARIN [Concomitant]
     Active Substance: WARFARIN
     Dosage: 1 DOSE
     Route: 048
     Dates: start: 2018
  16. DULOXETINE. [Concomitant]
     Active Substance: DULOXETINE
     Indication: ANAPHYLACTIC REACTION
     Dosage: 30 MG/CP
     Route: 065
     Dates: start: 20180214
  17. NORMAL SALINE [Concomitant]
     Active Substance: SODIUM CHLORIDE
     Indication: FLUSHING
     Dosage: 1.9 UNITS NOT SOECIFIED
     Route: 041
     Dates: start: 20180130
  18. SYMBICORT [Concomitant]
     Active Substance: BUDESONIDE\FORMOTEROL FUMARATE DIHYDRATE
     Dosage: 2 PUFFS INH
     Route: 065
     Dates: start: 20180119
  19. FABRAZYME [Suspect]
     Active Substance: AGALSIDASE BETA
     Indication: FABRY^S DISEASE
     Route: 041
  20. ALBUTEROL W/IPRATROPIUM [Concomitant]
     Active Substance: ALBUTEROL\IPRATROPIUM
     Dosage: I VIAL NEB
     Route: 065
     Dates: start: 20180119
  21. VITAMIN D3 [Concomitant]
     Active Substance: CHOLECALCIFEROL
     Route: 048
     Dates: start: 20180119
  22. PREDNISONE. [Concomitant]
     Active Substance: PREDNISONE
     Dosage: 5 MD/TB
     Route: 048
     Dates: start: 20170708
  23. CHOLESTYRAMINE. [Concomitant]
     Active Substance: CHOLESTYRAMINE
     Dosage: 4 GM/DS
     Route: 048
     Dates: start: 20170701
  24. PROGRAF [Concomitant]
     Active Substance: TACROLIMUS\TACROLIMUS ANHYDROUS
     Dosage: 1 DOSE
     Route: 048
     Dates: start: 20180330

REACTIONS (3)
  - Atrial fibrillation [Unknown]
  - Cardiac failure congestive [Unknown]
  - Weight decreased [Unknown]

NARRATIVE: CASE EVENT DATE: 2018
